FAERS Safety Report 16345690 (Version 1)
Quarter: 2019Q2

REPORT INFORMATION
  Report Type: Spontaneous
  Country: US (occurrence: US)
  Receive Date: 20190523
  Receipt Date: 20190523
  Transmission Date: 20190711
  Serious: No
  Sender: FDA-Public Use
  Company Number: US-TEVA-2019-US-1055311

PATIENT

DRUGS (2)
  1. ZOMIG [Concomitant]
     Active Substance: ZOLMITRIPTAN
  2. AJOVY [Suspect]
     Active Substance: FREMANEZUMAB-VFRM
     Indication: MIGRAINE
     Dosage: 225 MG/ 1.5 ML
     Route: 030
     Dates: start: 201809

REACTIONS (2)
  - Migraine [Unknown]
  - Incorrect route of product administration [Unknown]

NARRATIVE: CASE EVENT DATE: 20190308
